FAERS Safety Report 16251534 (Version 1)
Quarter: 2019Q2

REPORT INFORMATION
  Report Type: Spontaneous
  Country: US (occurrence: US)
  Receive Date: 20190428
  Receipt Date: 20190428
  Transmission Date: 20190711
  Serious: Yes (Other)
  Sender: FDA-Public Use
  Company Number: None

PATIENT
  Age: 65 Year
  Sex: Male
  Weight: 96.75 kg

DRUGS (1)
  1. 2MG LORAZEPAM [Suspect]
     Active Substance: LORAZEPAM

REACTIONS (4)
  - Anxiety [None]
  - Product taste abnormal [None]
  - Product solubility abnormal [None]
  - Drug ineffective [None]

NARRATIVE: CASE EVENT DATE: 20190428
